FAERS Safety Report 23079637 (Version 1)
Quarter: 2023Q4

REPORT INFORMATION
  Report Type: Spontaneous
  Country: US (occurrence: None)
  Receive Date: 20231017
  Receipt Date: 20231017
  Transmission Date: 20240109
  Serious: Yes (Hospitalization)
  Sender: FDA-Public Use
  Company Number: None

PATIENT
  Age: 63 Year
  Sex: Female
  Weight: 115 kg

DRUGS (1)
  1. OMEPRAZOLE [Suspect]
     Active Substance: OMEPRAZOLE
     Dosage: FREQUENCY : DAILY;?
     Route: 048
     Dates: start: 20221220, end: 20230104

REACTIONS (2)
  - Hypomagnesaemia [None]
  - Therapy cessation [None]

NARRATIVE: CASE EVENT DATE: 20230105
